FAERS Safety Report 25661711 (Version 2)
Quarter: 2025Q4

REPORT INFORMATION
  Report Type: Spontaneous
  Country: CA (occurrence: CA)
  Receive Date: 20250808
  Receipt Date: 20251127
  Transmission Date: 20260118
  Serious: Yes (Death, Other)
  Sender: HLS THERAPEUTICS
  Company Number: CA-HLS-202502083

PATIENT
  Age: 60 Year

DRUGS (1)
  1. CLOZAPINE [Suspect]
     Active Substance: CLOZAPINE
     Indication: Product used for unknown indication
     Dosage: TABLETS DOSAGE FORM?THERAPY DURATION: 7 YEARS
     Route: 065

REACTIONS (2)
  - Death [Fatal]
  - Intestinal obstruction [Fatal]
